FAERS Safety Report 6162067-2 (Version None)
Quarter: 2009Q2

REPORT INFORMATION
  Report Type: 
  Country: None (occurrence: None)
  Receive Date: 20090421
  Receipt Date: 20090414
  Transmission Date: 20091009
  Serious: Yes (Other)
  Sender: FDA-Public Use
  Company Number: US-ELI_LILLY_AND_COMPANY-US200904002803

PATIENT
  Sex: Male

DRUGS (12)
  1. HUMALOG MIX 75/25 [Suspect]
     Dosage: 22 U, 2/D
     Dates: start: 20070101
  2. BUMEX [Concomitant]
  3. POTASSIUM CHLORIDE [Concomitant]
  4. CELEXA [Concomitant]
  5. ASPIRIN [Concomitant]
  6. PREDNISONE [Concomitant]
  7. PERI-COLACE [Concomitant]
  8. LISINOPRIL [Concomitant]
  9. MUCINEX [Concomitant]
  10. ROXANOL [Concomitant]
     Indication: BACK PAIN
  11. ATROVENT [Concomitant]
     Indication: DYSPNOEA
  12. ALUPENT [Concomitant]
     Indication: DYSPNOEA

REACTIONS (4)
  - BACK PAIN [None]
  - BLOOD GLUCOSE INCREASED [None]
  - CARDIAC FAILURE CONGESTIVE [None]
  - DYSPNOEA [None]
